FAERS Safety Report 7798282-1 (Version None)
Quarter: 2011Q4

REPORT INFORMATION
  Report Type: 
  Country: None (occurrence: None)
  Receive Date: 20111005
  Receipt Date: 20110929
  Transmission Date: 20120403
  Serious: Yes (Hospitalization, Other)
  Sender: FDA-Public Use
  Company Number: US-AMGEN-USASP2011010877

PATIENT
  Age: 54 Year
  Sex: Female

DRUGS (3)
  1. METHOTREXATE [Concomitant]
     Dosage: 1 MG, QWK
     Dates: start: 20060101
  2. ENBREL [Suspect]
     Indication: PSORIATIC ARTHROPATHY
     Dosage: 50 MG, QWK
     Route: 058
     Dates: start: 20091201, end: 20100924
  3. ENBREL [Suspect]
     Indication: PSORIASIS
     Dates: start: 20081201, end: 20100901

REACTIONS (15)
  - MUSCULOSKELETAL PAIN [None]
  - PSORIATIC ARTHROPATHY [None]
  - STRESS [None]
  - FALL [None]
  - RED BLOOD CELL SEDIMENTATION RATE INCREASED [None]
  - LOCALISED INFECTION [None]
  - JOINT INJURY [None]
  - VERTIGO [None]
  - PAIN IN EXTREMITY [None]
  - TEARFULNESS [None]
  - STRESS FRACTURE [None]
  - STAPHYLOCOCCAL INFECTION [None]
  - ONYCHOCLASIS [None]
  - BLISTER [None]
  - PSORIASIS [None]
